FAERS Safety Report 6147040-2 (Version None)
Quarter: 2009Q2

REPORT INFORMATION
  Report Type: 
  Country: None (occurrence: None)
  Receive Date: 20090407
  Receipt Date: 20090401
  Transmission Date: 20091009
  Serious: Yes (Hospitalization)
  Sender: FDA-Public Use
  Company Number: US-ABBOTT-09P-163-0566047-00

PATIENT
  Sex: Female

DRUGS (5)
  1. ZEMPLAR CAPSULES 2MCG [Suspect]
     Indication: HYPERPARATHYROIDISM
     Route: 048
     Dates: start: 20081103, end: 20090313
  2. ZEMPLAR CAPSULES 2MCG [Suspect]
     Route: 048
     Dates: start: 20090313, end: 20090316
  3. ZEMPLAR CAPSULES 2MCG [Suspect]
     Route: 048
  4. VITAMIN D [Concomitant]
     Indication: VITAMIN SUPPLEMENTATION
  5. CALCIUM [Concomitant]
     Indication: MINERAL SUPPLEMENTATION
     Route: 048

REACTIONS (3)
  - BLOOD CALCIUM DECREASED [None]
  - POISONING [None]
  - RENAL DISORDER [None]
